FAERS Safety Report 7802389-X (Version None)
Quarter: 2011Q4

REPORT INFORMATION
  Report Type: 
  Country: None (occurrence: None)
  Receive Date: 20111007
  Receipt Date: 20110928
  Transmission Date: 20120403
  Serious: Yes (Hospitalization)
  Sender: FDA-Public Use
  Company Number: NL-TEVA-294796GER

PATIENT
  Sex: Male
  Weight: 50 kg

DRUGS (4)
  1. PACLITAXEL [Suspect]
     Dates: start: 20060317
  2. RADIOTHERAPY [Concomitant]
     Dates: start: 20060515
  3. CARBOPLATIN [Suspect]
     Indication: NON-SMALL CELL LUNG CANCER
     Route: 042
     Dates: start: 20060317
  4. VINORELBINE [Suspect]
     Indication: NON-SMALL CELL LUNG CANCER
     Route: 042
     Dates: start: 20060504

REACTIONS (4)
  - CIRCULATORY COLLAPSE [None]
  - CACHEXIA [None]
  - ATRIAL FIBRILLATION [None]
  - PNEUMONIA [None]
